FAERS Safety Report 4958380-4 (Version None)
Quarter: 2006Q1

REPORT INFORMATION
  Report Type: 
  Country: None (occurrence: None)
  Receive Date: 20060329
  Receipt Date: 20060329
  Transmission Date: 20060701
  Serious: Yes (Hospitalization)
  Sender: FDA-Public Use
  Company Number: None

PATIENT
  Age: 74 Year
  Sex: Male
  Weight: 99.7913 kg

DRUGS (1)
  1. LIPITOR [Suspect]
     Indication: BLOOD CHOLESTEROL INCREASED
     Dosage: 40 MG   1/DAY  PO
     Route: 048
     Dates: start: 19800101, end: 20050401

REACTIONS (8)
  - ABASIA [None]
  - ARTHRALGIA [None]
  - DYSSTASIA [None]
  - FALL [None]
  - MUSCLE ATROPHY [None]
  - MYALGIA [None]
  - MYOSITIS [None]
  - RHABDOMYOLYSIS [None]
